FAERS Safety Report 5055769-2 (Version None)
Quarter: 2006Q3

REPORT INFORMATION
  Report Type: 
  Country: None (occurrence: None)
  Receive Date: 20060714
  Receipt Date: 20060706
  Transmission Date: 20061208
  Serious: Yes (Hospitalization)
  Sender: FDA-Public Use
  Company Number: T200600660

PATIENT
  Age: 50 Year
  Sex: Male
  Weight: 90.7 kg

DRUGS (5)
  1. OXYCODONE HCL [Suspect]
     Indication: MUSCULOSKELETAL PAIN
     Dosage: 20 MG, 6 TIMES DAILY, ORAL
     Route: 048
     Dates: start: 20050401
  2. FENTANYL [Concomitant]
  3. TRAVATAN [Concomitant]
  4. DIAZEPAM [Concomitant]
  5. TRAZODONE HCL [Concomitant]

REACTIONS (11)
  - BRUXISM [None]
  - DELUSIONAL PERCEPTION [None]
  - DIZZINESS [None]
  - DRUG INEFFECTIVE [None]
  - FEAR [None]
  - FEELING ABNORMAL [None]
  - GLAUCOMA [None]
  - MUSCLE TWITCHING [None]
  - NAUSEA [None]
  - TUNNEL VISION [None]
  - URINE AMPHETAMINE POSITIVE [None]
